FAERS Safety Report 9263971 (Version 2)
Quarter: 2013Q2

REPORT INFORMATION
  Report Type: Spontaneous
  Country: JP (occurrence: JP)
  Receive Date: 20130430
  Receipt Date: 20130522
  Transmission Date: 20140414
  Serious: Yes (Other)
  Sender: FDA-Public Use
  Company Number: JP-VIIV HEALTHCARE LIMITED-B0887133A

PATIENT
  Age: 3 Day
  Sex: Female
  Weight: 1.78 kg

DRUGS (8)
  1. RETROVIR [Suspect]
     Indication: HIV INFECTION
     Dosage: 200MG TWICE PER DAY
     Route: 064
     Dates: start: 20100519, end: 20110105
  2. RETROVIR [Suspect]
     Indication: PROPHYLAXIS AGAINST HIV INFECTION
     Dosage: .35ML FOUR TIMES PER DAY
     Route: 048
     Dates: start: 20101221, end: 20110122
  3. EPIVIR [Suspect]
     Indication: HIV INFECTION
     Dosage: 150MG TWICE PER DAY
     Route: 064
     Dates: start: 20100519, end: 20110105
  4. KALETRA [Suspect]
     Indication: HIV INFECTION
     Dosage: 2IUAX TWICE PER DAY
     Route: 064
     Dates: start: 20100519, end: 20110105
  5. ATONIN O [Suspect]
     Indication: UTERINE CONTRACTIONS DURING PREGNANCY
     Dosage: 5IU PER DAY
     Route: 064
     Dates: start: 20101221, end: 20101222
  6. SEFMAZON [Suspect]
     Indication: LAPAROTOMY
     Dosage: 1G TWICE PER DAY
     Route: 064
     Dates: start: 20101221, end: 20101222
  7. MORPHINE HYDROCHLORIDE [Suspect]
     Indication: ANAESTHESIA PROCEDURE
     Dosage: 10MG PER DAY
     Route: 064
     Dates: start: 20101221, end: 20101222
  8. FENTANYL [Suspect]
     Indication: ANAESTHESIA PROCEDURE
     Dosage: 1MG PER DAY
     Route: 064
     Dates: start: 20101221, end: 20101221

REACTIONS (2)
  - Anaemia [Recovered/Resolved]
  - Foetal exposure during pregnancy [Unknown]
